FAERS Safety Report 13230996 (Version 1)
Quarter: 2017Q1

REPORT INFORMATION
  Report Type: Spontaneous
  Country: CA (occurrence: CA)
  Receive Date: 20170214
  Receipt Date: 20170214
  Transmission Date: 20170428
  Serious: Yes (Other)
  Sender: FDA-Public Use
  Company Number: CA-CELLTRION INC.-2017CA001546

PATIENT

DRUGS (1)
  1. INFLIXIMAB HOSPIRA [Suspect]
     Active Substance: INFLIXIMAB
     Indication: RHEUMATOID ARTHRITIS
     Dosage: 3 MG/KG, UNK (TOTAL EXPOSURE 540 MG)

REACTIONS (3)
  - Polyneuropathy [Recovering/Resolving]
  - Ataxia [Not Recovered/Not Resolved]
  - Hypoaesthesia [Recovering/Resolving]
